FAERS Safety Report 24174598 (Version 1)
Quarter: 2024Q3

REPORT INFORMATION
  Report Type: Spontaneous
  Country: CN (occurrence: CN)
  Receive Date: 20240805
  Receipt Date: 20240805
  Transmission Date: 20241017
  Serious: Yes (Hospitalization)
  Sender: BEIGENE
  Company Number: CN-BEIGENE-BGN-2024-011691

PATIENT

DRUGS (4)
  1. TISLELIZUMAB [Suspect]
     Active Substance: TISLELIZUMAB
     Indication: Hepatocellular carcinoma
     Dosage: UNK
     Dates: start: 20240119
  2. TISLELIZUMAB [Suspect]
     Active Substance: TISLELIZUMAB
     Dosage: 200 MILLIGRAM
     Route: 041
     Dates: start: 20240618
  3. LENVATINIB [Concomitant]
     Active Substance: LENVATINIB
     Indication: Hepatocellular carcinoma
     Dosage: UNK
     Dates: start: 20240119
  4. LENVATINIB [Concomitant]
     Active Substance: LENVATINIB
     Dosage: UNK
     Dates: start: 20240618

REACTIONS (2)
  - Hepatic cirrhosis [Unknown]
  - Platelet count decreased [Unknown]

NARRATIVE: CASE EVENT DATE: 20240703
